FAERS Safety Report 8947626 (Version 1)
Quarter: 2012Q4

REPORT INFORMATION
  Report Type: 
  Country: US (occurrence: US)
  Receive Date: 20121205
  Receipt Date: 20121205
  Transmission Date: 20130627
  Serious: No
  Sender: FDA-Public Use
  Company Number: US-BAYER-2012-120671

PATIENT
  Age: 32 Year
  Sex: Female

DRUGS (1)
  1. GADAVIST [Suspect]
     Indication: MRI BRAIN
     Dosage: 7 ml, UNK

REACTIONS (2)
  - Nausea [Recovered/Resolved]
  - Vomiting [Recovered/Resolved]
